FAERS Safety Report 5489404-6 (Version None)
Quarter: 2007Q4

REPORT INFORMATION
  Report Type: 
  Country: None (occurrence: None)
  Receive Date: 20071018
  Receipt Date: 20071012
  Transmission Date: 20080405
  Serious: Yes (Other)
  Sender: FDA-Public Use
  Company Number: CA-ASTRAZENECA-2007UW23986

PATIENT
  Age: 39 Year
  Sex: Female

DRUGS (5)
  1. SEROQUEL [Suspect]
     Route: 048
  2. APO-DIAZEPAM [Concomitant]
     Route: 048
  3. NICODERM [Concomitant]
  4. PANTOPRAZOLE SODIUM [Concomitant]
     Route: 048
  5. PMS-MIRTAZAPINE [Concomitant]
     Route: 048

REACTIONS (5)
  - CHEST PAIN [None]
  - DYSPNOEA [None]
  - EYE ROLLING [None]
  - FATIGUE [None]
  - PALPITATIONS [None]
